FAERS Safety Report 13120847 (Version 2)
Quarter: 2017Q1

REPORT INFORMATION
  Report Type: Report from Study
  Country: US (occurrence: US)
  Receive Date: 20170117
  Receipt Date: 20170209
  Transmission Date: 20170428
  Serious: No
  Sender: FDA-Public Use
  Company Number: US-GILEAD-2017-0251598

PATIENT
  Age: 35 Year
  Sex: Female
  Weight: 74.83 kg

DRUGS (9)
  1. AMBRISENTAN [Suspect]
     Active Substance: AMBRISENTAN
     Indication: PULMONARY HYPERTENSION
     Dosage: 5 MG, QD
     Route: 065
  2. MIRENA [Concomitant]
     Active Substance: LEVONORGESTREL
  3. AMBRISENTAN [Suspect]
     Active Substance: AMBRISENTAN
     Indication: SYSTEMIC LUPUS ERYTHEMATOSUS
  4. ADCIRCA [Concomitant]
     Active Substance: TADALAFIL
  5. MYCOPHENOLATE [Concomitant]
     Active Substance: MYCOPHENOLIC ACID
  6. LOTEPREDNOL [Concomitant]
     Active Substance: LOTEPREDNOL
  7. LEVOTHYROXINE. [Concomitant]
     Active Substance: LEVOTHYROXINE
  8. ETHACRYNIC ACID. [Concomitant]
     Active Substance: ETHACRYNIC ACID
  9. VALPROIC ACID. [Concomitant]
     Active Substance: VALPROIC ACID

REACTIONS (2)
  - Nasal congestion [Unknown]
  - Nasopharyngitis [Unknown]
